FAERS Safety Report 8117077-2 (Version None)
Quarter: 2012Q1

REPORT INFORMATION
  Report Type: 
  Country: None (occurrence: None)
  Receive Date: 20120206
  Receipt Date: 20120201
  Transmission Date: 20120608
  Serious: Yes (Other)
  Sender: FDA-Public Use
  Company Number: US-PFIZER INC-2012029010

PATIENT
  Sex: Female

DRUGS (2)
  1. LIPITOR [Suspect]
     Indication: SURGERY
  2. LIPITOR [Suspect]
     Indication: MYOCARDIAL INFARCTION
     Dosage: 40 MG, UNK

REACTIONS (6)
  - FEAR [None]
  - HYPERTENSION [None]
  - EYE OPERATION [None]
  - CRYING [None]
  - ANGINA PECTORIS [None]
  - HEADACHE [None]
